FAERS Safety Report 14226800 (Version 1)
Quarter: 2017Q4

REPORT INFORMATION
  Report Type: Report from Study
  Country: ES (occurrence: ES)
  Receive Date: 20171127
  Receipt Date: 20171127
  Transmission Date: 20180321
  Serious: Yes (Other)
  Sender: FDA-Public Use
  Company Number: ES-TEVA-2017-ES-827298

PATIENT
  Sex: Female

DRUGS (1)
  1. COPAXONE [Suspect]
     Active Substance: GLATIRAMER ACETATE
     Indication: RELAPSING-REMITTING MULTIPLE SCLEROSIS
     Route: 058

REACTIONS (4)
  - Injection site pain [Recovered/Resolved]
  - Injection site inflammation [Recovered/Resolved]
  - Injection site warmth [Recovered/Resolved]
  - Nuchal rigidity [Recovered/Resolved]

NARRATIVE: CASE EVENT DATE: 2017
